FAERS Safety Report 16231833 (Version 1)
Quarter: 2019Q2

REPORT INFORMATION
  Report Type: Spontaneous
  Country: US (occurrence: US)
  Receive Date: 20190424
  Receipt Date: 20190424
  Transmission Date: 20190711
  Serious: Yes (Hospitalization)
  Sender: FDA-Public Use
  Company Number: US-SA-2019SA111072

PATIENT
  Age: 60 Year
  Sex: Female

DRUGS (2)
  1. NEUPOGEN [Concomitant]
     Active Substance: FILGRASTIM
  2. PRALUENT [Suspect]
     Active Substance: ALIROCUMAB
     Indication: PLASMACYTOMA
     Dosage: 150 MG, QOW
     Route: 058

REACTIONS (3)
  - Headache [Recovering/Resolving]
  - Bone lesion [Unknown]
  - Bone pain [Unknown]

NARRATIVE: CASE EVENT DATE: 20190330
